FAERS Safety Report 11595360 (Version 2)
Quarter: 2015Q4

REPORT INFORMATION
  Report Type: Report from Study
  Country: US (occurrence: US)
  Receive Date: 20151006
  Receipt Date: 20151017
  Transmission Date: 20160304
  Serious: No
  Sender: FDA-Public Use
  Company Number: US-AMGEN-USASP2015099393

PATIENT
  Age: 57 Year
  Sex: Female

DRUGS (3)
  1. ENBREL [Suspect]
     Active Substance: ETANERCEPT
     Dosage: 225 MG, QWK
     Route: 065
     Dates: start: 20150914
  2. ENBREL [Suspect]
     Active Substance: ETANERCEPT
     Indication: PRODUCT USED FOR UNKNOWN INDICATION
     Dosage: UNK
     Route: 065
  3. ENBREL [Suspect]
     Active Substance: ETANERCEPT
     Dosage: 50 MG, QWK
     Route: 065

REACTIONS (8)
  - Injection site erythema [Not Recovered/Not Resolved]
  - Injection site pain [Unknown]
  - Arthralgia [Unknown]
  - Injection site reaction [Not Recovered/Not Resolved]
  - Pain [Unknown]
  - Injection site swelling [Not Recovered/Not Resolved]
  - Rubber sensitivity [Unknown]
  - Injection site pruritus [Not Recovered/Not Resolved]

NARRATIVE: CASE EVENT DATE: 20151006
